FAERS Safety Report 23674402 (Version 2)
Quarter: 2024Q2

REPORT INFORMATION
  Report Type: Spontaneous
  Country: US (occurrence: US)
  Receive Date: 20240326
  Receipt Date: 20240508
  Transmission Date: 20240716
  Serious: No
  Sender: FDA-Public Use
  Company Number: US-PFIZER INC-202400070506

PATIENT
  Age: 36 Year
  Sex: Female
  Weight: 83.91 kg

DRUGS (1)
  1. CORTEF [Suspect]
     Active Substance: HYDROCORTISONE
     Dosage: 15 MG, 1X/DAY (PRESCRIBED TO TAKE 15MG ONCE DAY; TAKES 1 + A HALF 10MG TABLETS)

REACTIONS (4)
  - Feeling abnormal [Unknown]
  - Fatigue [Unknown]
  - Stress [Unknown]
  - COVID-19 [Unknown]
